FAERS Safety Report 4494579-1 (Version None)
Quarter: 2004Q4

REPORT INFORMATION
  Report Type: 
  Country: None (occurrence: None)
  Receive Date: 20041103
  Receipt Date: 20041019
  Transmission Date: 20050328
  Serious: Yes (Hospitalization)
  Sender: FDA-Public Use
  Company Number: 2004-0007635

PATIENT
  Age: 39 Year
  Sex: Male
  Weight: 69 kg

DRUGS (7)
  1. VIREAD [Suspect]
     Indication: HIV INFECTION
     Dosage: 300 MG, 2 IN 1 D, ORAL
     Route: 048
     Dates: start: 20030127, end: 20040705
  2. DDI (DIDANOSINE) [Concomitant]
  3. RITONAVIR [Concomitant]
  4. ATAZANAVIR [Concomitant]
  5. PYRIMETHAMINE TAB [Concomitant]
  6. OMEPRAZOLE [Concomitant]
  7. FOLINIC ACID [Concomitant]

REACTIONS (4)
  - ASTHENIA [None]
  - PYREXIA [None]
  - RENAL FAILURE [None]
  - RENAL TUBULAR DISORDER [None]
